FAERS Safety Report 8199137-3 (Version None)
Quarter: 2012Q1

REPORT INFORMATION
  Report Type: 
  Country: None (occurrence: None)
  Receive Date: 20120309
  Receipt Date: 20120307
  Transmission Date: 20120608
  Serious: Yes (Hospitalization, Disabling)
  Sender: FDA-Public Use
  Company Number: US-B.I. PHARMACEUTICALS,INC./RIDGEFIELD-2012-BP-01846BP

PATIENT
  Sex: Male
  Weight: 79 kg

DRUGS (9)
  1. INSULIN DETEMIR [Concomitant]
     Dosage: 65 U
     Route: 058
  2. PIOGLITAZONE [Concomitant]
  3. ASPIRIN [Concomitant]
     Dosage: 325 MG
     Route: 048
  4. PRADAXA [Suspect]
     Indication: ATRIAL FIBRILLATION
     Dosage: 300 MG
     Route: 048
     Dates: start: 20111119, end: 20111121
  5. NIACIN [Concomitant]
  6. BISOPROLOL/HCTZ/TRIOAMTERENE [Concomitant]
  7. ESOMEPROZOLE [Concomitant]
  8. METFORMIN HYDROCHLORIDE [Concomitant]
  9. PRADAXA [Suspect]
     Indication: CEREBROVASCULAR ACCIDENT

REACTIONS (1)
  - ISCHAEMIC STROKE [None]
